FAERS Safety Report 4438735-7 (Version None)
Quarter: 2004Q3

REPORT INFORMATION
  Report Type: 
  Country: None (occurrence: None)
  Receive Date: 20040830
  Receipt Date: 20040817
  Transmission Date: 20050211
  Serious: Yes (Death)
  Sender: FDA-Public Use
  Company Number: 163-20785-04070215

PATIENT
  Age: 85 Year
  Sex: Female

DRUGS (1)
  1. THALOMID [Suspect]
     Indication: MULTIPLE MYELOMA
     Dosage: 200 MG, DAILY, ORAL
     Route: 048
     Dates: start: 20040527, end: 20040101

REACTIONS (4)
  - ASTHENIA [None]
  - CARDIAC ARREST [None]
  - FATIGUE [None]
  - SUDDEN DEATH [None]
